FAERS Safety Report 12599686 (Version 1)
Quarter: 2016Q3

REPORT INFORMATION
  Report Type: Spontaneous
  Country: US (occurrence: US)
  Receive Date: 20160727
  Receipt Date: 20160727
  Transmission Date: 20161109
  Serious: Yes (Other)
  Sender: FDA-Public Use
  Company Number: US-SA-2015SA143982

PATIENT
  Sex: Male

DRUGS (1)
  1. AMBIEN [Suspect]
     Active Substance: ZOLPIDEM TARTRATE
     Route: 065

REACTIONS (4)
  - Memory impairment [Unknown]
  - Drug administration error [Unknown]
  - Hallucination [Unknown]
  - Somnambulism [Unknown]
